FAERS Safety Report 7417934-6 (Version None)
Quarter: 2011Q2

REPORT INFORMATION
  Report Type: 
  Country: None (occurrence: None)
  Receive Date: 20110415
  Receipt Date: 20110411
  Transmission Date: 20111010
  Serious: Yes (Other)
  Sender: FDA-Public Use
  Company Number: GB-ALLERGAN-1105011US

PATIENT
  Sex: Female

DRUGS (2)
  1. PRED FORTE [Suspect]
     Indication: PRODUCT USED FOR UNKNOWN INDICATION
  2. PRED FORTE [Suspect]

REACTIONS (1)
  - CONJUNCTIVITIS [None]
